FAERS Safety Report 7890089-X (Version None)
Quarter: 2011Q4

REPORT INFORMATION
  Report Type: 
  Country: None (occurrence: None)
  Receive Date: 20111103
  Receipt Date: 20111102
  Transmission Date: 20120403
  Serious: Yes (Other)
  Sender: FDA-Public Use
  Company Number: US-ROCHE-783921

PATIENT
  Sex: Female
  Weight: 52.21 kg

DRUGS (3)
  1. ACCUTANE [Suspect]
     Indication: ACNE
     Route: 065
     Dates: start: 19990101, end: 19990501
  2. ORTHO TRI-CYCLEN [Concomitant]
     Indication: CONTRACEPTION
  3. MINOCYCLINE HCL [Concomitant]

REACTIONS (8)
  - STRESS [None]
  - INFLAMMATORY BOWEL DISEASE [None]
  - RASH [None]
  - MOOD SWINGS [None]
  - COLITIS ULCERATIVE [None]
  - ACNE [None]
  - DEPRESSION [None]
  - IRRITABLE BOWEL SYNDROME [None]
